FAERS Safety Report 12927003 (Version 1)
Quarter: 2016Q4

REPORT INFORMATION
  Report Type: Spontaneous
  Country: CN (occurrence: CN)
  Receive Date: 20161108
  Receipt Date: 20161108
  Transmission Date: 20170207
  Serious: Yes (Other)
  Sender: FDA-Public Use
  Company Number: CN-ASTRAZENECA-2016SF16687

PATIENT
  Age: 21967 Day
  Sex: Female
  Weight: 65 kg

DRUGS (4)
  1. ATORVASTATIN CALCIUM. [Suspect]
     Active Substance: ATORVASTATIN CALCIUM
     Indication: ACUTE MYOCARDIAL INFARCTION
     Route: 048
     Dates: start: 20160219, end: 20160223
  2. POLYENE PHOSPHATIDYLCHOLINE [Suspect]
     Active Substance: PHOSPHOLIPID
     Indication: PROPHYLAXIS
     Dates: start: 20160223
  3. CRESTOR [Suspect]
     Active Substance: ROSUVASTATIN CALCIUM
     Indication: HYPERTENSION
     Route: 048
     Dates: start: 20160223, end: 20160226
  4. CRESTOR [Suspect]
     Active Substance: ROSUVASTATIN CALCIUM
     Indication: ACUTE MYOCARDIAL INFARCTION
     Route: 048
     Dates: start: 20160223, end: 20160226

REACTIONS (1)
  - Liver injury [Recovered/Resolved]

NARRATIVE: CASE EVENT DATE: 20160226
